FAERS Safety Report 10349751 (Version 2)
Quarter: 2014Q3

REPORT INFORMATION
  Report Type: Spontaneous
  Country: US (occurrence: US)
  Receive Date: 20140730
  Receipt Date: 20140730
  Transmission Date: 20150326
  Serious: Yes (Hospitalization)
  Sender: FDA-Public Use
  Company Number: PHHY2014US090266

PATIENT
  Age: 62 Year
  Sex: Female

DRUGS (3)
  1. FAT EMULSION NOS [Interacting]
     Active Substance: EGG PHOSPHOLIPIDS\SAFFLOWER OIL\SOYBEAN OIL
     Indication: OFF LABEL USE
  2. DILTIAZEM [Interacting]
     Active Substance: DILTIAZEM
  3. VALSARTAN. [Suspect]
     Active Substance: VALSARTAN

REACTIONS (5)
  - Loss of consciousness [Unknown]
  - Bradycardia [Unknown]
  - Hypotension [Unknown]
  - Haemolysis [Unknown]
  - Overdose [Unknown]
